FAERS Safety Report 9706540 (Version 1)
Quarter: 2013Q4

REPORT INFORMATION
  Report Type: Spontaneous
  Country: US (occurrence: US)
  Receive Date: 20131125
  Receipt Date: 20131125
  Transmission Date: 20140711
  Serious: Yes (Hospitalization, Other)
  Sender: FDA-Public Use
  Company Number: US-BRISTOL-MYERS SQUIBB COMPANY-19846336

PATIENT
  Age: 23 Year
  Sex: Male

DRUGS (2)
  1. ABILIFY [Suspect]
     Route: 048
     Dates: start: 2013
  2. ABILIFY MAINTENA INJECTION [Suspect]
     Indication: SCHIZOPHRENIA
     Dates: start: 2013

REACTIONS (4)
  - Hospitalisation [Unknown]
  - Hallucination [Unknown]
  - Schizophrenia [Unknown]
  - Agitation [Unknown]
